FAERS Safety Report 9078911 (Version 1)
Quarter: 2013Q1

REPORT INFORMATION
  Report Type: Report from Study
  Country: US (occurrence: US)
  Receive Date: 20130130
  Receipt Date: 20130130
  Transmission Date: 20140127
  Serious: No
  Sender: FDA-Public Use
  Company Number: US-ABBOTT-12P-163-0959220-00

PATIENT
  Age: 61 Year
  Sex: Female

DRUGS (12)
  1. HUMIRA 40 MG/0.8 ML PEN [Suspect]
     Indication: RHEUMATOID ARTHRITIS
     Dates: start: 20120508
  2. FORTEO [Concomitant]
     Indication: OSTEOPOROSIS
  3. PREDNISONE [Concomitant]
     Indication: ARTHRITIS
     Dosage: 5MG DAILY
  4. ARAVA [Concomitant]
     Indication: ARTHRITIS
  5. HYDROCHLOROTHIAZIDE [Concomitant]
     Indication: HYPERTENSION
  6. PANTOPRAZOLE [Concomitant]
     Indication: DYSPEPSIA
     Dosage: DAILY
  7. POTASSIUM [Concomitant]
     Indication: PRODUCT USED FOR UNKNOWN INDICATION
     Dosage: DAILY
  8. IRON [Concomitant]
     Indication: PRODUCT USED FOR UNKNOWN INDICATION
     Dosage: DAILY
  9. NAPROSYN [Concomitant]
     Indication: ARTHRITIS
  10. LEXAPRO [Concomitant]
     Indication: ANXIETY
     Dosage: 20MG DAILY
  11. FOLIC ACID [Concomitant]
     Indication: PRODUCT USED FOR UNKNOWN INDICATION
     Dosage: 1 TABLET DAILY
     Dates: end: 20120616
  12. FOLIC ACID [Concomitant]
     Dosage: 2 TABLETS DAILY
     Dates: start: 20120616

REACTIONS (2)
  - Headache [Not Recovered/Not Resolved]
  - Injection site bruising [Recovered/Resolved]
